FAERS Safety Report 5699145-8 (Version None)
Quarter: 2008Q2

REPORT INFORMATION
  Report Type: 
  Country: None (occurrence: None)
  Receive Date: 20080409
  Receipt Date: 20080409
  Transmission Date: 20081010
  Serious: Yes (Death)
  Sender: FDA-Public Use
  Company Number: None

PATIENT
  Sex: Female
  Weight: 52.1637 kg

DRUGS (1)
  1. HEPARIN [Suspect]
     Dates: start: 20060224, end: 20060224

REACTIONS (5)
  - DOCUMENTED HYPERSENSITIVITY TO ADMINISTERED DRUG [None]
  - DRUG HYPERSENSITIVITY [None]
  - PROCEDURAL COMPLICATION [None]
  - RENAL FAILURE [None]
  - SHOCK [None]
